FAERS Safety Report 6972679-1 (Version None)
Quarter: 2010Q3

REPORT INFORMATION
  Report Type: 
  Country: None (occurrence: None)
  Receive Date: 20100909
  Receipt Date: 20091215
  Transmission Date: 20110219
  Serious: No
  Sender: FDA-Public Use
  Company Number: US-KINGPHARMUSA00001-K200901569

PATIENT
  Sex: Female
  Weight: 83.9 kg

DRUGS (8)
  1. CYTOMEL [Suspect]
     Indication: HYPOTHYROIDISM
     Dosage: 1/2 25 MCG TABLET BID
     Route: 048
     Dates: end: 20090601
  2. LIOTHYRONINE SODIUM [Suspect]
     Indication: HYPOTHYROIDISM
     Dosage: 12.5 MCG, BID
     Dates: start: 20090601
  3. SYNTHROID [Concomitant]
     Indication: HYPOTHYROIDISM
     Dosage: 0.137 ^MCG^, QD
  4. PREMARIN [Concomitant]
     Dosage: 0.9 MG, BID
  5. PROZAC [Concomitant]
     Indication: DEPRESSION
     Dosage: 20 MG, QD
  6. ADDERALL 10 [Concomitant]
     Indication: ATTENTION DEFICIT/HYPERACTIVITY DISORDER
     Dosage: 10 MG, QD
  7. TRAZODONE HCL [Concomitant]
     Indication: INSOMNIA
     Dosage: 25 MG, QHS
  8. AMLODIPINE [Concomitant]
     Indication: HYPERTENSION
     Dosage: 5 MG, QD

REACTIONS (7)
  - ARTHRALGIA [None]
  - BLOOD THYROID STIMULATING HORMONE INCREASED [None]
  - COGNITIVE DISORDER [None]
  - FEELING ABNORMAL [None]
  - JOINT SWELLING [None]
  - MYALGIA [None]
  - SLEEP DISORDER [None]
